FAERS Safety Report 9052036 (Version 2)
Quarter: 2013Q1

REPORT INFORMATION
  Report Type: Spontaneous
  Country: FR (occurrence: FR)
  Receive Date: 20130207
  Receipt Date: 20130227
  Transmission Date: 20140127
  Serious: Yes (Death, Hospitalization, Other)
  Sender: FDA-Public Use
  Company Number: FR-B.I. PHARMACEUTICALS,INC./RIDGEFIELD-2013-FF-00288FF

PATIENT
  Age: 85 None
  Sex: Female
  Weight: 40 kg

DRUGS (1)
  1. PRADAXA [Suspect]
     Dosage: 150 MG
     Route: 048
     Dates: start: 201208, end: 20130109

REACTIONS (9)
  - General physical health deterioration [Fatal]
  - Lung neoplasm [Unknown]
  - Malnutrition [Unknown]
  - Haemorrhagic disorder [Unknown]
  - Prothrombin time shortened [Unknown]
  - Subcutaneous haematoma [Unknown]
  - Haematochezia [Unknown]
  - Gastrointestinal haemorrhage [Unknown]
  - Overdose [Unknown]
